FAERS Safety Report 8830719 (Version 2)
Quarter: 2012Q4

REPORT INFORMATION
  Report Type: 
  Country: US (occurrence: US)
  Receive Date: 20121009
  Receipt Date: 20121106
  Transmission Date: 20130627
  Serious: Yes (Other)
  Sender: FDA-Public Use
  Company Number: US-AMGEN-USASP2012063559

PATIENT
  Age: 39 Year
  Sex: Female
  Weight: 55.33 kg

DRUGS (9)
  1. ENBREL [Suspect]
     Indication: PSORIASIS
     Dosage: 50 mg, qwk
     Route: 058
     Dates: start: 20120920
  2. RESTORIL                           /00393701/ [Concomitant]
     Dosage: 30 mg, qhs, as needed
     Route: 048
     Dates: start: 20121031
  3. LORTAB                             /00607101/ [Concomitant]
     Dosage: 7.5-500 mg, q4h, prn
     Route: 048
     Dates: start: 20120928
  4. DELTASONE                          /00044701/ [Concomitant]
     Dosage: 10 mg, qd
     Route: 048
     Dates: start: 20120920
  5. LYRICA [Concomitant]
     Dosage: UNK UNK, qhs
     Route: 048
     Dates: start: 20121014
  6. IMURAN                             /00001501/ [Concomitant]
     Dosage: 50 mg, bid
     Route: 048
  7. CYMBALTA [Concomitant]
     Dosage: 60 mg, qd
     Route: 048
  8. PLAQUENIL                          /00072602/ [Concomitant]
     Dosage: 200 mg, qhs
     Route: 048
  9. AMBIEN [Concomitant]
     Dosage: 10 mg, qhs, as needed
     Route: 048

REACTIONS (10)
  - Loss of consciousness [Not Recovered/Not Resolved]
  - Cough [Not Recovered/Not Resolved]
  - Asthenia [Not Recovered/Not Resolved]
  - Dizziness [Not Recovered/Not Resolved]
  - Sjogren^s syndrome [Unknown]
  - Systemic lupus erythematosus [Unknown]
  - Fibromyalgia [Unknown]
  - Musculoskeletal stiffness [Unknown]
  - Arthritis [Unknown]
  - Paraesthesia [Not Recovered/Not Resolved]
